FAERS Safety Report 12186527 (Version 1)
Quarter: 2016Q1

REPORT INFORMATION
  Report Type: Spontaneous
  Country: US (occurrence: US)
  Receive Date: 20160317
  Receipt Date: 20160317
  Transmission Date: 20160526
  Serious: No
  Sender: FDA-Public Use
  Company Number: US-ELI_LILLY_AND_COMPANY-US201602005884

PATIENT
  Age: 14 Year
  Sex: Male

DRUGS (2)
  1. HUMATROPE [Suspect]
     Active Substance: SOMATROPIN
     Indication: GROWTH HORMONE DEFICIENCY
     Dosage: 2.2 MG, UNK
     Route: 065
     Dates: start: 201507, end: 201601
  2. FLUOXETINE [Concomitant]
     Active Substance: FLUOXETINE HYDROCHLORIDE
     Dosage: UNK

REACTIONS (4)
  - Muscle spasms [Recovered/Resolved]
  - Muscle spasms [Recovered/Resolved]
  - Tic [Unknown]
  - Fall [Unknown]

NARRATIVE: CASE EVENT DATE: 201509
